FAERS Safety Report 6045137-9 (Version None)
Quarter: 2009Q1

REPORT INFORMATION
  Report Type: 
  Country: None (occurrence: None)
  Receive Date: 20090116
  Receipt Date: 20090116
  Transmission Date: 20090719
  Serious: Yes (Hospitalization)
  Sender: FDA-Public Use
  Company Number: None

PATIENT
  Sex: Female
  Weight: 58.1 kg

DRUGS (2)
  1. CYCLOPHOSPHAMIDE [Suspect]
     Dosage: 990 MG
     Dates: end: 20081208
  2. DOXORUBICIN HCL [Suspect]
     Dosage: 100 MG
     Dates: end: 20081208

REACTIONS (3)
  - EJECTION FRACTION DECREASED [None]
  - FATIGUE [None]
  - HAEMOGLOBIN ABNORMAL [None]
